FAERS Safety Report 9435891 (Version 3)
Quarter: 2013Q4

REPORT INFORMATION
  Report Type: Spontaneous
  Country: US (occurrence: US)
  Receive Date: 20130801
  Receipt Date: 20131014
  Transmission Date: 20140711
  Serious: Yes (Hospitalization, Other)
  Sender: FDA-Public Use
  Company Number: US-GILEAD-2013-0080517

PATIENT
  Sex: Female

DRUGS (3)
  1. LETAIRIS [Suspect]
     Indication: PULMONARY HYPERTENSION
     Dosage: 5 MG, QD
     Dates: start: 20130329
  2. LETAIRIS [Suspect]
     Indication: DRUG ABUSE
  3. REVATIO [Concomitant]

REACTIONS (3)
  - Pneumothorax [Not Recovered/Not Resolved]
  - Diaphragmatic disorder [Unknown]
  - Dyspnoea [Unknown]
